FAERS Safety Report 11736983 (Version 1)
Quarter: 2015Q4

REPORT INFORMATION
  Report Type: Spontaneous
  Country: US (occurrence: US)
  Receive Date: 20151110
  Receipt Date: 20151110
  Transmission Date: 20160304
  Serious: No
  Sender: FDA-Public Use
  Company Number: US-ELI_LILLY_AND_COMPANY-US201204006664

PATIENT
  Age: 53 Year
  Sex: Female

DRUGS (1)
  1. FORTEO [Suspect]
     Active Substance: TERIPARATIDE
     Indication: OSTEOPOROSIS
     Dosage: UNK, QD
     Dates: start: 201204

REACTIONS (13)
  - Musculoskeletal pain [Recovering/Resolving]
  - Pain [Recovering/Resolving]
  - Nausea [Recovered/Resolved]
  - Limb discomfort [Unknown]
  - Joint crepitation [Recovering/Resolving]
  - Visual acuity reduced [Unknown]
  - Diarrhoea [Recovering/Resolving]
  - Injection site pain [Unknown]
  - Vomiting [Recovering/Resolving]
  - Sleep disorder due to a general medical condition [Unknown]
  - Pain in jaw [Recovering/Resolving]
  - Injection site erythema [Recovered/Resolved]
  - Chondropathy [Unknown]

NARRATIVE: CASE EVENT DATE: 201204
